FAERS Safety Report 17714464 (Version 7)
Quarter: 2023Q4

REPORT INFORMATION
  Report Type: Spontaneous
  Country: US (occurrence: US)
  Receive Date: 20200427
  Receipt Date: 20231228
  Transmission Date: 20240110
  Serious: No
  Sender: FDA-Public Use
  Company Number: US-PFIZER INC-2020167959

PATIENT
  Age: 65 Year
  Sex: Female

DRUGS (2)
  1. PREMARIN [Suspect]
     Active Substance: ESTROGENS, CONJUGATED
     Dosage: UNK, AS NEEDED
  2. PREMARIN [Suspect]
     Active Substance: ESTROGENS, CONJUGATED
     Dosage: 1 G, CYCLIC (1 G QPM FOR 30 DAYS, AFTER 14 DAYS, DOWN TO 0.5 GM DAILY FOR 21 DAYS, THEN OFF 7 DAYS)
     Route: 067

REACTIONS (2)
  - Confusional state [Unknown]
  - Off label use [Unknown]
